FAERS Safety Report 8618099 (Version 3)
Quarter: 2013Q4

REPORT INFORMATION
  Report Type: Spontaneous
  Country: US (occurrence: US)
  Receive Date: 20120615
  Receipt Date: 20131025
  Transmission Date: 20140711
  Serious: Yes (Hospitalization, Other)
  Sender: FDA-Public Use
  Company Number: US-ASTRAZENECA-2010SE46584

PATIENT
  Age: 63 Year
  Sex: Female
  Weight: 74.8 kg

DRUGS (13)
  1. NEXIUM [Suspect]
     Indication: GASTROOESOPHAGEAL REFLUX DISEASE
     Route: 048
  2. NEXIUM [Suspect]
     Indication: BARRETT^S OESOPHAGUS
     Route: 048
  3. MORPHINE [Suspect]
     Route: 065
  4. XYLOCAINE INJECTION [Suspect]
     Route: 065
  5. DEXILANT [Concomitant]
  6. LORAZAPAM [Concomitant]
     Indication: ANXIETY
     Route: 048
     Dates: start: 2010
  7. CITALOPRAM [Concomitant]
     Indication: DEPRESSION
     Route: 048
     Dates: start: 2010
  8. LASIX [Concomitant]
     Indication: BLOOD PRESSURE
     Route: 048
     Dates: start: 2005
  9. DICYCLOMINE [Concomitant]
     Route: 048
     Dates: start: 2008
  10. SIMVASTATIN [Concomitant]
     Indication: BLOOD CHOLESTEROL ABNORMAL
     Route: 048
  11. LORTAB [Concomitant]
     Indication: PAIN
     Route: 048
  12. ESTADOL [Concomitant]
     Indication: HORMONE THERAPY
     Route: 048
  13. PANTOPRAZOLE [Concomitant]

REACTIONS (21)
  - Cerebrovascular accident [Unknown]
  - Anorectal disorder [Not Recovered/Not Resolved]
  - Convulsion [Unknown]
  - Throat irritation [Unknown]
  - Gastrooesophageal reflux disease [Unknown]
  - Sleep disorder due to general medical condition, insomnia type [Not Recovered/Not Resolved]
  - Barrett^s oesophagus [Unknown]
  - Regurgitation [Not Recovered/Not Resolved]
  - Dyspepsia [Not Recovered/Not Resolved]
  - Memory impairment [Not Recovered/Not Resolved]
  - Chest pain [Not Recovered/Not Resolved]
  - Pain in jaw [Not Recovered/Not Resolved]
  - Intervertebral disc degeneration [Not Recovered/Not Resolved]
  - Arthritis [Not Recovered/Not Resolved]
  - Intervertebral disc protrusion [Not Recovered/Not Resolved]
  - Anxiety disorder [Not Recovered/Not Resolved]
  - Depression [Not Recovered/Not Resolved]
  - Drug hypersensitivity [Not Recovered/Not Resolved]
  - Neuropathy peripheral [Not Recovered/Not Resolved]
  - Vomiting [Not Recovered/Not Resolved]
  - Drug dose omission [Not Recovered/Not Resolved]
